FAERS Safety Report 7785879-8 (Version None)
Quarter: 2011Q3

REPORT INFORMATION
  Report Type: 
  Country: None (occurrence: None)
  Receive Date: 20110929
  Receipt Date: 20110926
  Transmission Date: 20111222
  Serious: Yes (Death, Hospitalization)
  Sender: FDA-Public Use
  Company Number: JP-BAYER-201014746BYL

PATIENT
  Age: 63 Year
  Sex: Male
  Weight: 66 kg

DRUGS (33)
  1. URSODIOL [Concomitant]
     Indication: PROPHYLAXIS
     Dosage: 200 MG, TID
     Route: 065
     Dates: start: 20050527
  2. AMINOLEBAN [Concomitant]
     Indication: HEPATIC ENCEPHALOPATHY
     Dosage: 500 ML, QD
     Route: 042
     Dates: start: 20110109, end: 20110113
  3. NEUROBION [Concomitant]
     Indication: VITAMIN SUPPLEMENTATION
     Dosage: 1 DF, QD
     Dates: start: 20100908, end: 20100910
  4. FALKAMIN [Concomitant]
     Indication: HYPOALBUMINAEMIA
     Dosage: 4.15 G, BID
     Dates: start: 20101108
  5. SYAKUYAKUKANZOTO [Concomitant]
     Dosage: 2.5 MG, TID
     Route: 048
     Dates: start: 20101218
  6. CEFTRIAXONE [Concomitant]
     Dosage: 1 G, BID
     Dates: start: 20100908, end: 20100910
  7. SORAFENIB (RAF KINASE INHIBITOR) [Suspect]
     Dosage: 400 MG, QD
     Route: 048
     Dates: start: 20100906, end: 20110107
  8. LACTITOL [Concomitant]
     Indication: HYPERAMMONAEMIA
     Dosage: 6 MG, TID
     Route: 048
     Dates: start: 20060215, end: 20110307
  9. BASEN [Concomitant]
  10. VOGLIBOSE [Concomitant]
     Indication: DIABETES MELLITUS
     Dosage: 0.2 MG, BID
     Dates: start: 20080913
  11. DEXTROSE [Concomitant]
     Indication: PROPHYLAXIS
     Dosage: 20 ML, QD
     Dates: start: 20100907, end: 20100909
  12. AMINOLEBAN [AMINO ACIDS NOS] [Concomitant]
     Indication: HYPOALBUMINAEMIA
     Route: 048
     Dates: start: 20080215
  13. AMINOLEBAN [Concomitant]
     Indication: HYPERAMMONAEMIA
     Dosage: 500 ML, QD
     Route: 042
     Dates: start: 20100907, end: 20100909
  14. UREA [Concomitant]
     Indication: PROPHYLAXIS
  15. LACTULOSE [Concomitant]
     Indication: HEPATIC ENCEPHALOPATHY
     Dosage: 20 ML, TID
     Route: 048
     Dates: start: 20100908, end: 20100909
  16. CEFTRIAXONE [Concomitant]
     Dosage: 1 G, QD
     Dates: start: 20101101, end: 20101101
  17. AMINOLEBAN [Concomitant]
     Indication: HYPOALBUMINAEMIA
     Dosage: 500 ML, QD
     Route: 042
     Dates: start: 20100907, end: 20100910
  18. CEFTRIAXONE [Concomitant]
     Indication: INFECTION
     Dosage: 1 G, QD
     Dates: start: 20100907, end: 20100907
  19. FAMOTIDINE [Concomitant]
     Indication: GASTRITIS
     Dosage: 20 MG, QD
     Dates: start: 20100907, end: 20100909
  20. FAMOTIDINE [Concomitant]
     Indication: PROPHYLAXIS
  21. FAROPENEM [Concomitant]
     Indication: PYREXIA
     Dosage: 200 MG, TID
     Dates: start: 20100911
  22. FLURBIPROFEN [Concomitant]
     Indication: PYREXIA
     Dosage: 50 MG, QD
     Dates: start: 20100908, end: 20100910
  23. SYAKUYAKUKANZOTO [Concomitant]
     Indication: MUSCLE SPASMS
     Dosage: 2.5 MG, TID
     Route: 048
     Dates: start: 20101127, end: 20101210
  24. SORAFENIB (RAF KINASE INHIBITOR) [Suspect]
     Indication: HEPATIC NEOPLASM MALIGNANT
     Dosage: 400 MG, BID
     Route: 048
     Dates: start: 20100814, end: 20100827
  25. FAMOTIDINE [Concomitant]
     Indication: GASTRITIS
     Dosage: 40 MG, BID
     Route: 065
     Dates: start: 20080913
  26. UREA [Concomitant]
     Indication: PALMAR-PLANTAR ERYTHRODYSAESTHESIA SYNDROME
     Dosage: UNK UNK, QS
     Route: 061
     Dates: start: 20100814
  27. OMEPRAZOLE [Concomitant]
     Indication: GASTRITIS PROPHYLAXIS
     Dosage: 20 MG, QD
     Dates: start: 20100907, end: 20100909
  28. DICLOFENAC [Concomitant]
     Indication: PYREXIA
     Dosage: 25 MG, AS REQUIRED
     Dates: start: 20100925, end: 20110116
  29. SORAFENIB (RAF KINASE INHIBITOR) [Suspect]
     Dosage: 400 MG, QD
     Dates: start: 20110114
  30. LINIFANIB [Suspect]
     Indication: HEPATIC NEOPLASM MALIGNANT
  31. BASEN [Concomitant]
     Indication: DIABETES MELLITUS
     Route: 048
     Dates: start: 20080913
  32. LACTULOSE [Concomitant]
     Indication: HYPERAMMONAEMIA
     Dosage: 10 ML, TID
     Dates: start: 20100925, end: 20110307
  33. DEXTROSE [Concomitant]
     Indication: HYPOGLYCAEMIA

REACTIONS (4)
  - PYREXIA [None]
  - DEPRESSED LEVEL OF CONSCIOUSNESS [None]
  - INFECTIOUS PERITONITIS [None]
  - HEPATIC ENCEPHALOPATHY [None]
